FAERS Safety Report 11880870 (Version 1)
Quarter: 2015Q4

REPORT INFORMATION
  Report Type: Report from Study
  Country: CA (occurrence: CA)
  Receive Date: 20151230
  Receipt Date: 20151230
  Transmission Date: 20160305
  Serious: Yes (Death, Other)
  Sender: FDA-Public Use
  Company Number: CA-INCYTE CORPORATION-2015IN006830

PATIENT
  Age: 59 Year
  Sex: Female
  Weight: 42.1 kg

DRUGS (9)
  1. JAKAFI [Suspect]
     Active Substance: RUXOLITINIB
     Indication: MYELOFIBROSIS
     Dosage: 20 MG
     Route: 065
     Dates: start: 20151209
  2. HYDROXYUREA. [Concomitant]
     Active Substance: HYDROXYUREA
     Indication: SPLENOMEGALY
     Dosage: 500 MG, TID
     Route: 048
     Dates: start: 20031125, end: 20151118
  3. ZOPICLONE [Concomitant]
     Active Substance: ZOPICLONE
     Indication: INSOMNIA
     Dosage: 7.5 MG, PRN HS
     Route: 065
     Dates: start: 19971125
  4. CIPRALEX [Concomitant]
     Active Substance: ESCITALOPRAM OXALATE
     Indication: DEPRESSION
     Dosage: 10 MG, QD
     Route: 048
     Dates: start: 20151205
  5. SENOKOT                            /00936101/ [Concomitant]
     Active Substance: DOCUSATE SODIUM\SENNOSIDES A AND B
     Indication: CONSTIPATION
     Dosage: 1 - 2 TABLETS, PRN
     Route: 065
     Dates: start: 20111125
  6. ADVIL PM PAIN RELIEVER/NIGHTTIME SLEEP-AID [Concomitant]
     Indication: PAIN
     Dosage: 1- 2 TABT , PRN
     Dates: start: 20151125
  7. K-DUR [Concomitant]
     Active Substance: POTASSIUM CHLORIDE
     Indication: HYPOKALAEMIA
     Dosage: 1 DF, QD
     Route: 048
     Dates: start: 20151209
  8. AMITRIPTYLINE [Concomitant]
     Active Substance: AMITRIPTYLINE
     Indication: DEPRESSION
     Dosage: 50 MG, QD
     Route: 048
     Dates: start: 19941125
  9. RISEDRONATE [Concomitant]
     Active Substance: RISEDRONATE SODIUM
     Indication: OSTEOPOROSIS
     Dosage: 35 MG, QW
     Route: 048
     Dates: start: 20131125

REACTIONS (2)
  - Sudden death [Fatal]
  - Blood pressure increased [Unknown]

NARRATIVE: CASE EVENT DATE: 20151209
